FAERS Safety Report 6912374-8 (Version None)
Quarter: 2010Q3

REPORT INFORMATION
  Report Type: 
  Country: None (occurrence: None)
  Receive Date: 20100806
  Receipt Date: 20080415
  Transmission Date: 20110219
  Serious: No
  Sender: FDA-Public Use
  Company Number: US-PFIZER INC-2008034249

PATIENT
  Sex: Female
  Weight: 95.71 kg

DRUGS (8)
  1. VFEND [Suspect]
     Indication: BRONCHOPULMONARY ASPERGILLOSIS
     Route: 048
     Dates: start: 20080325
  2. CARDURA [Concomitant]
  3. VALSARTAN [Concomitant]
  4. GUAIFENESIN [Concomitant]
  5. INTAL [Concomitant]
  6. ALBUTEROL [Concomitant]
  7. KLOR-CON [Concomitant]
  8. ALL OTHER THERAPEUTIC PRODUCTS [Concomitant]

REACTIONS (2)
  - CHAPPED LIPS [None]
  - DRY MOUTH [None]
